FAERS Safety Report 8384467-2 (Version None)
Quarter: 2012Q2

REPORT INFORMATION
  Report Type: 
  Country: None (occurrence: None)
  Receive Date: 20120524
  Receipt Date: 20120522
  Transmission Date: 20120825
  Serious: Yes (Death)
  Sender: FDA-Public Use
  Company Number: AU-GLAXOSMITHKLINE-B0803428A

PATIENT
  Sex: Male

DRUGS (3)
  1. ZYPREXA [Concomitant]
  2. VENTOLIN [Suspect]
     Indication: ASTHMA
     Route: 065
  3. ACETAMINOPHEN W/ CODEINE [Concomitant]

REACTIONS (1)
  - ASTHMA [None]
